FAERS Safety Report 5269138-3 (Version None)
Quarter: 2007Q1

REPORT INFORMATION
  Report Type: 
  Country: None (occurrence: None)
  Receive Date: 20070314
  Receipt Date: 20070302
  Transmission Date: 20070707
  Serious: Yes (Hospitalization)
  Sender: FDA-Public Use
  Company Number: 237053

PATIENT
  Age: 60 Year
  Sex: Male
  Weight: 114.4 kg

DRUGS (2)
  1. RITUXAN [Suspect]
     Indication: NON-HODGKIN'S LYMPHOMA
     Dosage: 375 MG/M2, INTRAVENOUS
     Route: 042
     Dates: start: 20070207
  2. DOXIL [Suspect]
     Indication: NON-HODGKIN'S LYMPHOMA
     Dosage: 30 MG/M2, INTRAVENOUS
     Route: 042
     Dates: start: 20070209

REACTIONS (3)
  - DEHYDRATION [None]
  - FATIGUE [None]
  - PYREXIA [None]
